FAERS Safety Report 5725589-1 (Version None)
Quarter: 2008Q2

REPORT INFORMATION
  Report Type: 
  Country: None (occurrence: None)
  Receive Date: 20080501
  Receipt Date: 20080319
  Transmission Date: 20081010
  Serious: Yes (Life-Threatening, Other)
  Sender: FDA-Public Use
  Company Number: US-BOEHRINGER INGELHEIM GMBH, GERMANY-2003-BP-06152BP

PATIENT
  Sex: Male
  Weight: 2 kg

DRUGS (7)
  1. VIRAMUNE [Suspect]
     Indication: HIV INFECTION
     Route: 015
  2. AZT [Suspect]
     Indication: HIV INFECTION
     Route: 042
     Dates: start: 20030729
  3. GENTAMICIN [Concomitant]
     Dates: start: 20030729
  4. PENICILLIN [Concomitant]
     Dates: start: 20030729
  5. VITAMIN K TAB [Concomitant]
     Route: 030
  6. ENGERIX-B [Concomitant]
     Route: 030
     Dates: start: 20030729
  7. COMBIVIR [Concomitant]
     Indication: HIV INFECTION
     Route: 015
     Dates: start: 20030618, end: 20030723

REACTIONS (4)
  - ASPARTATE AMINOTRANSFERASE INCREASED [None]
  - BLOOD POTASSIUM INCREASED [None]
  - NEUTROPHIL COUNT DECREASED [None]
  - RESPIRATORY DISTRESS [None]
